FAERS Safety Report 9248888 (Version 1)
Quarter: 2013Q2

REPORT INFORMATION
  Report Type: Spontaneous
  Country: US (occurrence: US)
  Receive Date: 20130423
  Receipt Date: 20130423
  Transmission Date: 20140414
  Serious: Yes (Hospitalization)
  Sender: FDA-Public Use
  Company Number: US-ROCHE-1217033

PATIENT
  Sex: Male

DRUGS (2)
  1. XOLAIR [Suspect]
     Indication: CHRONIC SPONTANEOUS URTICARIA
     Route: 065
  2. XOLAIR [Suspect]
     Indication: OFF LABEL USE

REACTIONS (1)
  - Malaria [Unknown]
